FAERS Safety Report 6468887-9 (Version None)
Quarter: 2009Q4

REPORT INFORMATION
  Report Type: 
  Country: None (occurrence: None)
  Receive Date: 20091203
  Receipt Date: 20071219
  Transmission Date: 20100525
  Serious: Yes (Hospitalization, Other)
  Sender: FDA-Public Use
  Company Number: IE-ELI_LILLY_AND_COMPANY-IE200608002330

PATIENT
  Sex: Female
  Weight: 53.07 kg

DRUGS (14)
  1. ZYPREXA [Suspect]
     Indication: PSYCHOTIC DISORDER
     Dosage: 20 MG, EACH EVENING
     Route: 048
     Dates: end: 20060705
  2. ZYPREXA [Suspect]
     Dosage: 10 MG, EACH EVENING
     Route: 048
     Dates: start: 20060818
  3. HALOPERIDOL [Concomitant]
     Dosage: 20 MG, 2/D
     Route: 048
     Dates: end: 20060701
  4. HALOPERIDOL [Concomitant]
     Dosage: 5 MG, DAILY (1/D)
     Route: 048
  5. METFORMIN HYDROCHLORIDE [Concomitant]
     Dosage: 500 MG, 3/D
     Route: 048
  6. ZESTRIL                                 /USA/ [Concomitant]
     Dosage: 10 MG, DAILY (1/D)
     Route: 048
  7. CILEST                                  /GFR/ [Concomitant]
     Indication: ORAL CONTRACEPTION
  8. PANTOPRAZOLE [Concomitant]
     Dosage: 40 MG, DAILY (1/D)
     Route: 048
  9. BISOPROLOL [Concomitant]
     Dosage: 2.5 MG, DAILY (1/D)
     Route: 065
  10. DIGOXIN [Concomitant]
     Dosage: 0.125 MG, EACH EVENING
     Route: 048
  11. SPIRONOLACTONE [Concomitant]
     Dosage: 25 MG, UNKNOWN
     Route: 048
  12. FRUSEMIDE [Concomitant]
     Dosage: 40 MEQ, DAILY (1/D)
     Route: 048
  13. RISPERDAL [Concomitant]
  14. DOMPERIDONE [Concomitant]

REACTIONS (4)
  - CARDIAC FAILURE CONGESTIVE [None]
  - CONGESTIVE CARDIOMYOPATHY [None]
  - RENAL FAILURE ACUTE [None]
  - TYPE 2 DIABETES MELLITUS [None]
